FAERS Safety Report 5622784-7 (Version None)
Quarter: 2008Q1

REPORT INFORMATION
  Report Type: 
  Country: None (occurrence: None)
  Receive Date: 20080212
  Receipt Date: 20080206
  Transmission Date: 20080703
  Serious: Yes (Congenital Anomaly)
  Sender: FDA-Public Use
  Company Number: GB-BOEHRINGER INGELHEIM GMBH, GERMANY-2008-UK-00536UK

PATIENT

DRUGS (2)
  1. VIRAMUNE [Suspect]
     Dates: start: 20070801
  2. SUSTIVA [Suspect]
     Dates: start: 20070601, end: 20070801

REACTIONS (4)
  - DEFORMITY THORAX [None]
  - EXOMPHALOS [None]
  - FOETAL DISORDER [None]
  - HEAD CIRCUMFERENCE ABNORMAL [None]
